FAERS Safety Report 25266685 (Version 2)
Quarter: 2025Q3

REPORT INFORMATION
  Report Type: Report from Study
  Country: ET (occurrence: ET)
  Receive Date: 20250505
  Receipt Date: 20250813
  Transmission Date: 20251021
  Serious: Yes (Death)
  Sender: BEIGENE
  Company Number: ET-BEIGENE-BGN-2025-007006

PATIENT
  Age: 68 Year

DRUGS (1)
  1. BRUKINSA [Suspect]
     Active Substance: ZANUBRUTINIB
     Indication: Chronic lymphocytic leukaemia

REACTIONS (2)
  - Prolymphocytic leukaemia [Fatal]
  - Sepsis [Fatal]
